FAERS Safety Report 21530425 (Version 1)
Quarter: 2022Q4

REPORT INFORMATION
  Report Type: Spontaneous
  Country: GB (occurrence: GB)
  Receive Date: 20221031
  Receipt Date: 20221031
  Transmission Date: 20230112
  Serious: Yes (Other)
  Sender: FDA-Public Use
  Company Number: GB-VIRTUS PHARMACEUTICALS, LLC-2022VTS00038

PATIENT
  Sex: Male

DRUGS (8)
  1. ALBUTEROL [Suspect]
     Active Substance: ALBUTEROL
     Indication: Atrioventricular block
     Dosage: 5 MG, 3X/DAY
     Route: 064
  2. ALBUTEROL [Suspect]
     Active Substance: ALBUTEROL
     Dosage: 8 MG 3X/DAY
     Route: 064
  3. ALBUTEROL [Suspect]
     Active Substance: ALBUTEROL
     Dosage: 6 MG 3X/DAY
     Route: 064
  4. ALBUTEROL [Suspect]
     Active Substance: ALBUTEROL
     Dosage: 4 MG 3X/DAY
     Route: 064
  5. ALBUTEROL [Suspect]
     Active Substance: ALBUTEROL
     Dosage: 2 MG 3X/DAY
     Route: 064
  6. ALBUTEROL [Suspect]
     Active Substance: ALBUTEROL
     Dosage: TWO DOSES OF 2 MG AND ONE OF 4 MG PER DAY
     Route: 064
  7. HYDROXYCHLOROQUINE [Concomitant]
     Active Substance: HYDROXYCHLOROQUINE
     Route: 064
  8. ASPIRIN [Concomitant]
     Active Substance: ASPIRIN
     Route: 064

REACTIONS (1)
  - Ventricular extrasystoles [Recovered/Resolved]
